FAERS Safety Report 15188701 (Version 1)
Quarter: 2018Q3

REPORT INFORMATION
  Report Type: Spontaneous
  Country: US (occurrence: US)
  Receive Date: 20180724
  Receipt Date: 20180724
  Transmission Date: 20181010
  Serious: No
  Sender: FDA-Public Use
  Company Number: US-PFIZER INC-2018296097

PATIENT
  Age: 7 Decade
  Sex: Female

DRUGS (1)
  1. BOSULIF [Suspect]
     Active Substance: BOSUTINIB MONOHYDRATE
     Dosage: 400 MG, UNK

REACTIONS (4)
  - Rash [Not Recovered/Not Resolved]
  - Skin disorder [Unknown]
  - Eosinophilia [Unknown]
  - Condition aggravated [Not Recovered/Not Resolved]
